FAERS Safety Report 5079593-X (Version None)
Quarter: 2006Q3

REPORT INFORMATION
  Report Type: 
  Country: None (occurrence: None)
  Receive Date: 20060814
  Receipt Date: 20060720
  Transmission Date: 20061208
  Serious: Yes (Hospitalization)
  Sender: FDA-Public Use
  Company Number: CN-NOVOPROD-255461

PATIENT
  Age: 66 Year
  Sex: Female
  Weight: 45 kg

DRUGS (3)
  1. NOVOLIN R [Suspect]
     Indication: INSULIN-REQUIRING TYPE II DIABETES MELLITUS
     Dosage: 16 IU, QD
     Dates: start: 20060208
  2. PROPAFENONE HCL [Concomitant]
     Dosage: 3 TAB, TID
     Dates: start: 20060228
  3. ISOSORBIDE DINITRATE [Concomitant]
     Dosage: 1 TAB, TID

REACTIONS (4)
  - FATIGUE [None]
  - HYPERHIDROSIS [None]
  - NAUSEA [None]
  - RASH [None]
